FAERS Safety Report 13526016 (Version 3)
Quarter: 2017Q3

REPORT INFORMATION
  Report Type: Spontaneous
  Country: US (occurrence: US)
  Receive Date: 20170509
  Receipt Date: 20170811
  Transmission Date: 20171127
  Serious: Yes (Hospitalization, Other)
  Sender: FDA-Public Use
  Company Number: US-TEVA-760957ACC

PATIENT
  Sex: Female

DRUGS (3)
  1. COPAXONE [Suspect]
     Active Substance: GLATIRAMER ACETATE
     Indication: MULTIPLE SCLEROSIS
     Route: 058
     Dates: start: 20170110
  2. PEPCID AC [Concomitant]
     Active Substance: FAMOTIDINE
  3. ELAVIL [Concomitant]
     Active Substance: AMITRIPTYLINE HYDROCHLORIDE

REACTIONS (4)
  - Multiple sclerosis relapse [Not Recovered/Not Resolved]
  - Injection site swelling [Unknown]
  - Injection site reaction [Not Recovered/Not Resolved]
  - Injection site erythema [Unknown]
